FAERS Safety Report 5928099-1 (Version None)
Quarter: 2008Q4

REPORT INFORMATION
  Report Type: 
  Country: None (occurrence: None)
  Receive Date: 20081023
  Receipt Date: 20081020
  Transmission Date: 20090506
  Serious: Yes (Life-Threatening)
  Sender: FDA-Public Use
  Company Number: B0542943A

PATIENT
  Age: 59 Year
  Sex: Male

DRUGS (4)
  1. ULTIVA [Suspect]
     Route: 042
     Dates: start: 20081014, end: 20081014
  2. PROPOFOL [Suspect]
     Route: 042
     Dates: start: 20081014, end: 20081014
  3. ROCURONIUM BROMIDE [Suspect]
     Route: 042
     Dates: start: 20081014, end: 20081014
  4. CEFAMEZIN [Suspect]
     Indication: DRUG USE FOR UNKNOWN INDICATION
     Route: 065

REACTIONS (3)
  - ANAPHYLACTIC REACTION [None]
  - BLOOD PRESSURE DECREASED [None]
  - ERYTHEMA [None]
